FAERS Safety Report 19096818 (Version 1)
Quarter: 2021Q2

REPORT INFORMATION
  Report Type: Spontaneous
  Country: US (occurrence: US)
  Receive Date: 20210405
  Receipt Date: 20210405
  Transmission Date: 20210717
  Serious: No
  Sender: FDA-Public Use
  Company Number: None

PATIENT
  Age: 36 Year
  Weight: 81 kg

DRUGS (1)
  1. FLUTICASONE PROPIONATE. [Suspect]
     Active Substance: FLUTICASONE PROPIONATE
     Indication: HYPERSENSITIVITY
     Dosage: ?          QUANTITY:2 SPRAY(S);OTHER ROUTE:INTRA?NASAL?
     Dates: start: 20210321, end: 20210405

REACTIONS (11)
  - Heart rate increased [None]
  - Decreased appetite [None]
  - Headache [None]
  - Fatigue [None]
  - Abdominal pain upper [None]
  - Abdominal discomfort [None]
  - Extrasystoles [None]
  - Chest discomfort [None]
  - Nausea [None]
  - Chills [None]
  - Anxiety [None]

NARRATIVE: CASE EVENT DATE: 20210328
